FAERS Safety Report 10494064 (Version 1)
Quarter: 2014Q4

REPORT INFORMATION
  Report Type: Spontaneous
  Country: US (occurrence: US)
  Receive Date: 20141003
  Receipt Date: 20141003
  Transmission Date: 20150528
  Serious: No
  Sender: FDA-Public Use
  Company Number: US-009507513-1409USA014650

PATIENT
  Sex: Female

DRUGS (4)
  1. PEGINTRON [Suspect]
     Active Substance: PEGINTERFERON ALFA-2B
     Dosage: 120 MICROGRAM, QW, REDIPEN
     Route: 058
  2. REBETOL [Suspect]
     Active Substance: RIBAVIRIN
  3. PEGINTRON [Suspect]
     Active Substance: PEGINTERFERON ALFA-2B
     Indication: CHRONIC HEPATITIS C
     Dosage: 120 MICROGRAM, QW, REDIPEN
     Route: 058
  4. SOVALDI [Concomitant]
     Active Substance: SOFOSBUVIR

REACTIONS (2)
  - Product quality issue [Unknown]
  - Needle issue [Unknown]
